FAERS Safety Report 8331969-0 (Version None)
Quarter: 2012Q2

REPORT INFORMATION
  Report Type: 
  Country: None (occurrence: None)
  Receive Date: 20120502
  Receipt Date: 20120420
  Transmission Date: 20120825
  Serious: Yes (Hospitalization, Other)
  Sender: FDA-Public Use
  Company Number: US-ELI_LILLY_AND_COMPANY-US201204005031

PATIENT
  Sex: Female

DRUGS (2)
  1. FORTEO [Suspect]
     Indication: OSTEOPOROSIS
     Dosage: UNK UNK, QD
     Route: 065
     Dates: start: 20120312
  2. FORTEO [Suspect]
     Dosage: UNK UNK, QD
     Route: 065

REACTIONS (4)
  - MALAISE [None]
  - HALLUCINATION [None]
  - VIRAL INFECTION [None]
  - CARDIAC FAILURE CONGESTIVE [None]
